FAERS Safety Report 8913843 (Version 2)
Quarter: 2012Q4

REPORT INFORMATION
  Report Type: 
  Country: NL (occurrence: NL)
  Receive Date: 20121119
  Receipt Date: 20121129
  Transmission Date: 20130627
  Serious: Yes (Hospitalization)
  Sender: FDA-Public Use
  Company Number: NL-AMGEN-NLDSP2012072690

PATIENT
  Age: 50 Year
  Sex: Female

DRUGS (4)
  1. NEULASTA [Suspect]
     Indication: PRODUCT USED FOR UNKNOWN INDICATION
     Dosage: 6 mg, q4wk
     Route: 058
     Dates: start: 20120830
  2. PRIMPERAN [Concomitant]
     Dosage: UNK
  3. EMEND                              /01627301/ [Concomitant]
     Dosage: UNK
  4. DEXAMETHASON                       /00016001/ [Concomitant]
     Dosage: UNK

REACTIONS (6)
  - Pyrexia [Unknown]
  - Inflammation [Unknown]
  - Malaise [Unknown]
  - Fatigue [Unknown]
  - Nasopharyngitis [Unknown]
  - Headache [Unknown]
